FAERS Safety Report 6690367-6 (Version None)
Quarter: 2010Q2

REPORT INFORMATION
  Report Type: 
  Country: None (occurrence: None)
  Receive Date: 20100420
  Receipt Date: 20100420
  Transmission Date: 20101027
  Serious: Yes (Other)
  Sender: FDA-Public Use
  Company Number: None

PATIENT
  Age: 66 Year
  Sex: Female
  Weight: 108.8633 kg

DRUGS (1)
  1. FENTANYL [Suspect]
     Indication: BACK PAIN
     Dosage: APPLY 1 PATCH 72 HRS 72 HRS SKIN
     Dates: start: 20100325, end: 20100331

REACTIONS (7)
  - ANXIETY [None]
  - APPLICATION SITE ERYTHEMA [None]
  - DYSPNOEA [None]
  - GAIT DISTURBANCE [None]
  - HALLUCINATION, VISUAL [None]
  - MUSCULOSKELETAL PAIN [None]
  - SOMNOLENCE [None]
